FAERS Safety Report 4620885-3 (Version None)
Quarter: 2005Q1

REPORT INFORMATION
  Report Type: 
  Country: None (occurrence: None)
  Receive Date: 20050325
  Receipt Date: 20050314
  Transmission Date: 20050727
  Serious: Yes (Hospitalization, Other)
  Sender: FDA-Public Use
  Company Number: 2005045395

PATIENT
  Age: 77 Year
  Sex: Female
  Weight: 63.5036 kg

DRUGS (7)
  1. NEURONTIN [Suspect]
     Indication: ILL-DEFINED DISORDER
     Dosage: 500 MG (100 MG, 5 IN 1 D); ORAL
     Route: 048
  2. NEURONTIN [Suspect]
     Indication: NERVOUSNESS
     Dosage: 500 MG (100 MG, 5 IN 1 D); ORAL
     Route: 048
  3. RANITIDINE HYDROCHLORIDE [Concomitant]
  4. METHYLPHENOBARBITAL [Concomitant]
  5. NABUMETONE [Concomitant]
  6. ATENOLOL [Concomitant]
  7. PAROXETINE HYDROCHLORIDE [Concomitant]

REACTIONS (5)
  - BLOOD TEST ABNORMAL [None]
  - FEELING ABNORMAL [None]
  - GRAND MAL CONVULSION [None]
  - PANCREATITIS [None]
  - PHARMACEUTICAL PRODUCT COMPLAINT [None]
